FAERS Safety Report 7090451-1 (Version None)
Quarter: 2010Q4

REPORT INFORMATION
  Report Type: 
  Country: None (occurrence: None)
  Receive Date: 20101012
  Receipt Date: 20100716
  Transmission Date: 20110411
  Serious: Yes (Hospitalization)
  Sender: FDA-Public Use
  Company Number: 1000014202

PATIENT
  Age: 27 Year
  Sex: Male

DRUGS (2)
  1. LEXAPRO [Suspect]
     Indication: BIPOLAR DISORDER
     Dosage: 10 MG (10 MG, 1 IN 1 D), ORAL
     Route: 048
     Dates: start: 20100101, end: 20100101
  2. LEXAPRO [Suspect]
     Indication: DEPRESSION
     Dosage: 10 MG (10 MG, 1 IN 1 D), ORAL
     Route: 048
     Dates: start: 20100101, end: 20100101

REACTIONS (6)
  - DEPRESSION [None]
  - ERECTILE DYSFUNCTION [None]
  - FATIGUE [None]
  - LIBIDO DECREASED [None]
  - PARAESTHESIA [None]
  - SUICIDAL IDEATION [None]
